FAERS Safety Report 18970580 (Version 1)
Quarter: 2021Q1

REPORT INFORMATION
  Report Type: Report from Study
  Country: IT (occurrence: IT)
  Receive Date: 20210304
  Receipt Date: 20210304
  Transmission Date: 20210420
  Serious: Yes (Hospitalization)
  Sender: FDA-Public Use
  Company Number: IT-TEVA-2021-IT-1886194

PATIENT
  Age: 79 Year
  Sex: Female

DRUGS (7)
  1. NITRAZEPAM [Suspect]
     Active Substance: NITRAZEPAM
     Indication: INTENTIONAL SELF-INJURY
     Dosage: 50 MG
     Route: 048
     Dates: start: 20201222, end: 20201222
  2. MIRTAZAPINE. [Suspect]
     Active Substance: MIRTAZAPINE
     Indication: INTENTIONAL SELF-INJURY
     Dosage: 600 MG
     Route: 048
     Dates: start: 20201222, end: 20201222
  3. QUETIAPINE. [Suspect]
     Active Substance: QUETIAPINE
     Indication: INTENTIONAL SELF-INJURY
     Dosage: 750 MG
     Route: 048
     Dates: start: 20201222, end: 20201222
  4. WARFARIN SODIUM. [Concomitant]
     Active Substance: WARFARIN SODIUM
  5. BISOPROLOL FUMARATE. [Concomitant]
     Active Substance: BISOPROLOL FUMARATE
     Dosage: 1.25 MG
     Route: 048
  6. RAMIPRIL. [Concomitant]
     Active Substance: RAMIPRIL
     Dosage: 5 MG
  7. LEVOPRAID [Concomitant]

REACTIONS (4)
  - Tachycardia [Unknown]
  - Bradyphrenia [Unknown]
  - Sopor [Unknown]
  - Drug abuse [Unknown]

NARRATIVE: CASE EVENT DATE: 20201222
